FAERS Safety Report 16410368 (Version 1)
Quarter: 2019Q2

REPORT INFORMATION
  Report Type: Spontaneous
  Country: US (occurrence: US)
  Receive Date: 20190610
  Receipt Date: 20190610
  Transmission Date: 20190711
  Serious: No
  Sender: FDA-Public Use
  Company Number: US-PFIZER INC-2019243814

PATIENT
  Age: 66 Year
  Sex: Female
  Weight: 88.9 kg

DRUGS (2)
  1. GLIPIZIDE. [Suspect]
     Active Substance: GLIPIZIDE
     Dosage: 10 MG (TWO TABLETS), PER DAY
  2. GLIPIZIDE. [Suspect]
     Active Substance: GLIPIZIDE
     Indication: BLOOD GLUCOSE INCREASED
     Dosage: 7.5 MG (ONE AND A HALF TABLETS), PER DAY

REACTIONS (1)
  - Drug ineffective [Unknown]
